FAERS Safety Report 8006341-3 (Version None)
Quarter: 2011Q4

REPORT INFORMATION
  Report Type: 
  Country: None (occurrence: None)
  Receive Date: 20111226
  Receipt Date: 20111221
  Transmission Date: 20120403
  Serious: Yes (Death, Other)
  Sender: FDA-Public Use
  Company Number: PHHY2011CA109530

PATIENT
  Sex: Female

DRUGS (1)
  1. SANDOSTATIN LAR [Suspect]
     Indication: OVARIAN NEOPLASM
     Dosage: 20 MG, QMO
     Route: 030
     Dates: start: 20111024

REACTIONS (6)
  - METASTASES TO PERITONEUM [None]
  - PLEURAL EFFUSION [None]
  - DEATH [None]
  - PULMONARY EMBOLISM [None]
  - TERMINAL STATE [None]
  - INFECTION [None]
